FAERS Safety Report 8557626-3 (Version None)
Quarter: 2012Q3

REPORT INFORMATION
  Report Type: 
  Country: None (occurrence: None)
  Receive Date: 20120801
  Receipt Date: 20120724
  Transmission Date: 20120928
  Serious: Yes (Other)
  Sender: FDA-Public Use
  Company Number: JP-VERTEX PHARMACEUTICALS INC.-AE-2012-010960

PATIENT
  Age: 70 Year
  Sex: Female

DRUGS (3)
  1. REBETOL [Concomitant]
     Route: 048
     Dates: start: 20120718
  2. TELAVIC (TELAPREVIR) [Suspect]
     Indication: HEPATITIS C
     Route: 048
     Dates: start: 20120718, end: 20120720
  3. PEG-INTRON [Concomitant]
     Route: 058
     Dates: start: 20120718

REACTIONS (2)
  - RASH [None]
  - RENAL DISORDER [None]
